FAERS Safety Report 9664639 (Version 1)
Quarter: 2013Q4

REPORT INFORMATION
  Report Type: Spontaneous
  Country: IT (occurrence: None)
  Receive Date: 20131031
  Receipt Date: 20131031
  Transmission Date: 20140711
  Serious: Yes (Other)
  Sender: FDA-Public Use
  Company Number: FK201304727

PATIENT
  Age: 58 Year
  Sex: Male

DRUGS (1)
  1. CEFTRIAXON [Suspect]
     Indication: BRONCHITIS
     Dosage: TOTAL
     Route: 030
     Dates: start: 20131014, end: 20131014

REACTIONS (3)
  - Asphyxia [None]
  - Pruritus [None]
  - Rash [None]
